FAERS Safety Report 9222073 (Version 1)
Quarter: 2013Q1

REPORT INFORMATION
  Report Type: Spontaneous
  Country: US (occurrence: None)
  Receive Date: 20120910
  Receipt Date: 20120910
  Transmission Date: 20140127
  Serious: No
  Sender: FDA-Public Use
  Company Number: 1208USA005955

PATIENT
  Age: 80 Year
  Sex: Female

DRUGS (5)
  1. ZIOPTAN (TAFLUPROST) EYE DROPS, SOLUTION, 0.0015% [Suspect]
     Route: 050
     Dates: start: 201207
  2. PLAVIX (DOPIDOGREL BISULFATE) [Concomitant]
  3. SOTALOL HYDROCHLORIDE (SOTALOL HYDROCHLORIDE) [Concomitant]
  4. SYNTHROID (LEVOTHYROXINE SODIUM) [Concomitant]
  5. PRILOSEC (OMEPRAZOLE) CAPSULE [Concomitant]

REACTIONS (2)
  - Headache [None]
  - Vision blurred [None]
